FAERS Safety Report 5669873-9 (Version None)
Quarter: 2008Q1

REPORT INFORMATION
  Report Type: 
  Country: None (occurrence: None)
  Receive Date: 20080317
  Receipt Date: 20080305
  Transmission Date: 20080703
  Serious: Yes (Hospitalization)
  Sender: FDA-Public Use
  Company Number: ES-PFIZER INC-2008020412

PATIENT
  Age: 14 Year
  Sex: Female

DRUGS (5)
  1. ZYVOXID TABLET [Suspect]
     Indication: RESPIRATORY TRACT INFECTION
     Dates: start: 20071121, end: 20071124
  2. PULMICORT [Concomitant]
     Route: 055
  3. ZITHROMAX [Concomitant]
     Route: 048
  4. AMPICILLIN [Concomitant]
     Route: 055
  5. ROCHEVIT [Concomitant]
     Route: 048

REACTIONS (1)
  - PANCREATITIS [None]
